FAERS Safety Report 5257033-5 (Version None)
Quarter: 2007Q1

REPORT INFORMATION
  Report Type: 
  Country: None (occurrence: None)
  Receive Date: 20070302
  Receipt Date: 20070221
  Transmission Date: 20070707
  Serious: Yes (Hospitalization, Other)
  Sender: FDA-Public Use
  Company Number: 2006-06-2199

PATIENT
  Age: 38 Year
  Sex: Male
  Weight: 84.369 kg

DRUGS (8)
  1. PEG-INTRON [Suspect]
     Indication: HEPATITIS C
     Dosage: 120 MCG;WK; IM
     Route: 030
     Dates: start: 20060306, end: 20070212
  2. RIBAVIRIN [Suspect]
     Indication: HEPATITIS C
     Dosage: 600 MG BID PO
     Route: 048
     Dates: start: 20060308, end: 20070212
  3. METHADONE HYDROCHLORIDE [Concomitant]
  4. REGLAN [Concomitant]
  5. SEROQUEL [Concomitant]
  6. VALIUM [Concomitant]
  7. EFFEXOR [Concomitant]
  8. NEURONTIN [Concomitant]

REACTIONS (11)
  - ALOPECIA [None]
  - DEHYDRATION [None]
  - FAECES DISCOLOURED [None]
  - FATIGUE [None]
  - NAUSEA [None]
  - ORAL INTAKE REDUCED [None]
  - PAIN [None]
  - RED BLOOD CELL COUNT DECREASED [None]
  - VOMITING [None]
  - WEIGHT DECREASED [None]
  - WHITE BLOOD CELL COUNT INCREASED [None]
